FAERS Safety Report 7960959-2 (Version None)
Quarter: 2011Q4

REPORT INFORMATION
  Report Type: 
  Country: None (occurrence: None)
  Receive Date: 20111202
  Receipt Date: 20111117
  Transmission Date: 20120403
  Serious: Yes (Death, Hospitalization, Congenital Anomaly, Other)
  Sender: FDA-Public Use
  Company Number: NSR-00312-2011

PATIENT
  Sex: Male

DRUGS (3)
  1. ALLOPURINOL [Suspect]
     Dosage: 300 MG QD, DF
  2. MULTI-VITAMINS [Concomitant]
  3. METHYLDOPA [Concomitant]

REACTIONS (24)
  - CLEFT LIP AND PALATE [None]
  - NEONATAL CARDIAC FAILURE [None]
  - CONGENITAL DIAPHRAGMATIC HERNIA [None]
  - CONGENITAL CENTRAL NERVOUS SYSTEM ANOMALY [None]
  - CAESAREAN SECTION [None]
  - MICROTIA [None]
  - NEONATAL RESPIRATORY FAILURE [None]
  - KIDNEY ENLARGEMENT [None]
  - CONGENITAL GENITOURINARY ABNORMALITY [None]
  - MATERNAL DRUGS AFFECTING FOETUS [None]
  - HYPERTELORISM OF ORBIT [None]
  - CONGENITAL ACROCHORDON [None]
  - PULMONARY HYPOPLASIA [None]
  - POSTMATURE BABY [None]
  - MICROPHTHALMOS [None]
  - COLOBOMA [None]
  - EXTERNAL AUDITORY CANAL ATRESIA [None]
  - DIAPHRAGMATIC APLASIA [None]
  - SINGLE FUNCTIONAL KIDNEY [None]
  - ACCESSORY SPLEEN [None]
  - MICROGNATHIA [None]
  - CONGENITAL HYDROCEPHALUS [None]
  - CRYPTORCHISM [None]
  - OPTIC ATROPHY [None]
